FAERS Safety Report 9120139 (Version 1)
Quarter: 2013Q1

REPORT INFORMATION
  Report Type: Spontaneous
  Country: US (occurrence: US)
  Receive Date: 20130226
  Receipt Date: 20130226
  Transmission Date: 20140127
  Serious: No
  Sender: FDA-Public Use
  Company Number: AF-ASTRAZENECA-2013SE03392

PATIENT
  Sex: Male

DRUGS (3)
  1. SEROQUEL XR [Suspect]
     Indication: BIPOLAR DISORDER
     Route: 048
  2. SEROQUEL XR [Suspect]
     Indication: BIPOLAR DISORDER
     Route: 048
  3. AMBIEN [Concomitant]

REACTIONS (3)
  - Feeling abnormal [Unknown]
  - Executive dysfunction [Unknown]
  - Mental impairment [Unknown]
